FAERS Safety Report 14070107 (Version 6)
Quarter: 2017Q4

REPORT INFORMATION
  Report Type: Report from Study
  Country: None (occurrence: CH)
  Receive Date: 20171010
  Receipt Date: 20171110
  Transmission Date: 20180321
  Serious: Yes (Death, Other)
  Sender: FDA-Public Use
  Company Number: CH-ABBVIE-17K-151-2126403-00

PATIENT
  Age: 77 Year
  Sex: Female

DRUGS (3)
  1. DUODOPA [Suspect]
     Active Substance: CARBIDOPA\LEVODOPA
     Indication: PRODUCT USED FOR UNKNOWN INDICATION
     Dosage: 1 CASSETTE PER 24HOURS
     Route: 050
     Dates: start: 20120919, end: 20120924
  2. HUMIRA [Suspect]
     Active Substance: ADALIMUMAB
     Indication: PSORIASIS
     Route: 058
     Dates: end: 2014
  3. DUODOPA [Suspect]
     Active Substance: CARBIDOPA\LEVODOPA
     Route: 050
     Dates: start: 20120924

REACTIONS (5)
  - General physical health deterioration [Fatal]
  - Cardio-respiratory arrest [Fatal]
  - Asphyxia [Fatal]
  - Iron deficiency [Unknown]
  - Aspiration [Fatal]

NARRATIVE: CASE EVENT DATE: 2017
